FAERS Safety Report 24988896 (Version 1)
Quarter: 2025Q1

REPORT INFORMATION
  Report Type: Spontaneous
  Country: US (occurrence: US)
  Receive Date: 20250220
  Receipt Date: 20250220
  Transmission Date: 20250408
  Serious: No
  Sender: BAUSCH AND LOMB
  Company Number: US-BAUSCHBL-2025BNL002424

PATIENT
  Age: 72 Year
  Sex: Male
  Weight: 77 kg

DRUGS (10)
  1. LOTEPREDNOL ETABONATE [Suspect]
     Active Substance: LOTEPREDNOL ETABONATE
     Indication: Iritis
     Dosage: 1 DROP INTO THE LEFT EYE FOUR TIMES PER DAY
     Route: 047
     Dates: start: 20250121
  2. LOTEPREDNOL ETABONATE [Suspect]
     Active Substance: LOTEPREDNOL ETABONATE
     Dosage: 1 DROP INTO THE LEFT EYE TWICE DAILY IN THE MORNING AND EVENING (8 AM AND 8 PM).
     Route: 047
  3. LOTEPREDNOL ETABONATE [Suspect]
     Active Substance: LOTEPREDNOL ETABONATE
     Dosage: 1 DROP INTO THE LEFT EYE ONCE DAILY IN THE MORNING FOR THE NEXT FOUR DAYS
     Route: 047
     Dates: start: 20250205
  4. CYCLOPENTOLATE HYDROCHLORIDE [Suspect]
     Active Substance: CYCLOPENTOLATE HYDROCHLORIDE
     Indication: Pupil dilation procedure
     Dosage: DROP INTO THE LEFT EYE TWO TIMES PER DAY
     Route: 047
     Dates: start: 20250119, end: 2025
  5. DILTIAZEM [Concomitant]
     Active Substance: DILTIAZEM
     Indication: Product used for unknown indication
     Route: 065
  6. PRAVASTATIN [Concomitant]
     Active Substance: PRAVASTATIN
     Indication: Product used for unknown indication
     Route: 065
  7. FINASTERIDE [Concomitant]
     Active Substance: FINASTERIDE
     Indication: Product used for unknown indication
     Route: 065
  8. ALFUZOSIN [Concomitant]
     Active Substance: ALFUZOSIN
     Indication: Product used for unknown indication
     Route: 065
  9. ELIQUIS [Concomitant]
     Active Substance: APIXABAN
     Indication: Product used for unknown indication
     Route: 065
  10. FAMOTIDINE [Concomitant]
     Active Substance: FAMOTIDINE
     Indication: Product used for unknown indication
     Route: 065

REACTIONS (4)
  - Heart rate decreased [Unknown]
  - Blood pressure increased [Unknown]
  - Lethargy [Unknown]
  - Vitreous floaters [Unknown]
